FAERS Safety Report 7028765-3 (Version None)
Quarter: 2010Q3

REPORT INFORMATION
  Report Type: 
  Country: None (occurrence: None)
  Receive Date: 20100830
  Receipt Date: 20100806
  Transmission Date: 20110219
  Serious: Yes (Hospitalization)
  Sender: FDA-Public Use
  Company Number: 2010PROUSA00033

PATIENT
  Age: 65 Year
  Sex: Male

DRUGS (9)
  1. PROVENGE [Suspect]
     Indication: PROSTATE CANCER METASTATIC
     Dosage: 250 ML, SINGLE, INTRAVENOUS
     Route: 042
     Dates: start: 20100719, end: 20100719
  2. ALLEGRA [Concomitant]
  3. AVAPRO [Concomitant]
  4. LASIX [Concomitant]
  5. COREG [Concomitant]
  6. SINGULAIR [Concomitant]
  7. VIOXX [Concomitant]
  8. PREDNISONE [Concomitant]
  9. ALDACTONE [Concomitant]

REACTIONS (6)
  - BACK PAIN [None]
  - INFLUENZA LIKE ILLNESS [None]
  - PRODUCT CONTAMINATION MICROBIAL [None]
  - STAPHYLOCOCCAL BACTERAEMIA [None]
  - TRANSIENT ISCHAEMIC ATTACK [None]
  - TRANSMISSION OF AN INFECTIOUS AGENT VIA A MEDICINAL PRODUCT [None]
